FAERS Safety Report 8791015 (Version 1)
Quarter: 2012Q4

REPORT INFORMATION
  Report Type: Spontaneous
  Country: US (occurrence: None)
  Receive Date: 20120907
  Receipt Date: 20120907
  Transmission Date: 20130627
  Serious: Yes (Hospitalization)
  Sender: FDA-Public Use
  Company Number: USA/USA/12/0025604

PATIENT
  Age: 46 Year
  Sex: Female
  Weight: 40 kg

DRUGS (3)
  1. LEVETIRACETAM [Suspect]
  2. PHENOBARBITAL [Concomitant]
  3. PHENYTOIN (PHENYTOIN) [Concomitant]

REACTIONS (1)
  - Hypothyroidism [None]
